FAERS Safety Report 7905826-5 (Version None)
Quarter: 2011Q4

REPORT INFORMATION
  Report Type: 
  Country: None (occurrence: None)
  Receive Date: 20111108
  Receipt Date: 20111026
  Transmission Date: 20120403
  Serious: Yes (Life-Threatening)
  Sender: FDA-Public Use
  Company Number: 2011AT000415

PATIENT

DRUGS (5)
  1. VITAMIN K /01542801/ [Concomitant]
  2. DOPAMINE HCL [Concomitant]
  3. RANITIDINE [Concomitant]
  4. MIDAZOLAM [Concomitant]
  5. ALPROSTADIL [Suspect]
     Indication: HEART DISEASE CONGENITAL
     Dosage: 0.08 UG/KG;MIN;IV
     Route: 042

REACTIONS (2)
  - OXYGEN SATURATION DECREASED [None]
  - OFF LABEL USE [None]
